FAERS Safety Report 6689142-8 (Version None)
Quarter: 2010Q2

REPORT INFORMATION
  Report Type: 
  Country: None (occurrence: None)
  Receive Date: 20100420
  Receipt Date: 20100413
  Transmission Date: 20101027
  Serious: Yes (Hospitalization)
  Sender: FDA-Public Use
  Company Number: JP-ELI_LILLY_AND_COMPANY-JP201004003720

PATIENT
  Age: 66 Year
  Sex: Female

DRUGS (1)
  1. GEMZAR [Suspect]
     Indication: OVARIAN CANCER RECURRENT
     Dosage: 1400 MG, UNK
     Route: 042
     Dates: start: 20100407, end: 20100407

REACTIONS (4)
  - ARTHRALGIA [None]
  - HYPOAESTHESIA [None]
  - OFF LABEL USE [None]
  - VASCULAR INSUFFICIENCY [None]
